FAERS Safety Report 20154888 (Version 3)
Quarter: 2022Q1

REPORT INFORMATION
  Report Type: Report from Study
  Country: JP (occurrence: None)
  Receive Date: 20211207
  Receipt Date: 20220120
  Transmission Date: 20220423
  Serious: Yes (Hospitalization)
  Sender: FDA-Public Use
  Company Number: JP-ROCHE-2971083

PATIENT
  Age: 67 Year
  Sex: Female
  Weight: 56.1 kg

DRUGS (16)
  1. BEVACIZUMAB [Suspect]
     Active Substance: BEVACIZUMAB
     Indication: Cervix carcinoma
     Route: 042
     Dates: start: 20210512, end: 20211111
  2. ATEZOLIZUMAB [Suspect]
     Active Substance: ATEZOLIZUMAB
     Indication: Cervix carcinoma
     Route: 042
     Dates: start: 20210512, end: 20211111
  3. CARBOPLATIN [Suspect]
     Active Substance: CARBOPLATIN
     Indication: Cervix carcinoma
     Route: 042
     Dates: start: 20210512, end: 20211111
  4. PACLITAXEL [Suspect]
     Active Substance: PACLITAXEL
     Indication: Cervix carcinoma
     Route: 042
     Dates: start: 20210512, end: 20211111
  5. UMECLIDINIUM BROMIDE [Concomitant]
     Active Substance: UMECLIDINIUM BROMIDE
     Indication: Asthma
     Route: 048
     Dates: start: 2013
  6. DESLORATADINE [Concomitant]
     Active Substance: DESLORATADINE
     Indication: Seasonal allergy
     Route: 048
     Dates: start: 202102
  7. ELIQUIS [Concomitant]
     Active Substance: APIXABAN
     Indication: Deep vein thrombosis
     Dosage: 2 TABLETS/DAY
     Route: 048
     Dates: start: 20201203
  8. FAMOTIDINE [Concomitant]
     Active Substance: FAMOTIDINE
     Dosage: 2 TABLETS/DAY
     Route: 048
     Dates: start: 20201109
  9. UNSPECIFIED INGREDIENT [Concomitant]
     Active Substance: UNSPECIFIED INGREDIENT
     Dosage: PROPER DOSE
     Route: 061
     Dates: start: 20201101
  10. EMEND CAPSULES [Concomitant]
     Indication: Prophylaxis of nausea and vomiting
     Dosage: 80 MG/DAY
     Route: 048
     Dates: start: 20210513
  11. PRIMPERAN [Concomitant]
     Active Substance: METOCLOPRAMIDE HYDROCHLORIDE
     Indication: Prophylaxis of nausea and vomiting
     Dosage: 15 MG/DAY
     Route: 048
     Dates: start: 20210513
  12. MIROGABALIN BESYLATE [Concomitant]
     Active Substance: MIROGABALIN BESYLATE
     Indication: Peripheral sensory neuropathy
     Dosage: 10MG/DAY
     Route: 048
     Dates: start: 20210524
  13. DIFLUPREDNATE [Concomitant]
     Active Substance: DIFLUPREDNATE
     Indication: Rash maculo-papular
     Dosage: 10MG/DAY
     Route: 061
     Dates: start: 20210525
  14. LOCOID [Concomitant]
     Active Substance: HYDROCORTISONE BUTYRATE
     Indication: Rash maculo-papular
     Route: 061
     Dates: start: 20210730
  15. ESCHERICHIA COLI\HYDROCORTISONE [Concomitant]
     Active Substance: ESCHERICHIA COLI\HYDROCORTISONE
     Indication: Proctalgia
     Route: 061
     Dates: start: 20210730
  16. MEDICON (UNK INGREDIENTS) [Concomitant]
     Indication: Asthma
     Dosage: 45MG/DAY
     Route: 048
     Dates: start: 20210819

REACTIONS (1)
  - Urinary tract infection [Recovered/Resolved]

NARRATIVE: CASE EVENT DATE: 20211128
